FAERS Safety Report 9193256 (Version 3)
Quarter: 2013Q2

REPORT INFORMATION
  Report Type: Spontaneous
  Country: US (occurrence: US)
  Receive Date: 20130327
  Receipt Date: 20130522
  Transmission Date: 20140414
  Serious: No
  Sender: FDA-Public Use
  Company Number: US-PFIZER INC-2013097670

PATIENT
  Age: 52 Year
  Sex: Female

DRUGS (4)
  1. PRISTIQ [Suspect]
     Indication: DEPRESSION
     Dosage: 50 MG, 1X/DAY
     Route: 048
     Dates: start: 20120424, end: 20130224
  2. XANAX [Concomitant]
     Dosage: 0.5 MG, UNK
  3. HYDROCHLOROTHIAZID [Concomitant]
     Dosage: 50 MG, WEEKLY
  4. MESALAMINE [Concomitant]
     Dosage: 100 MG, UNK

REACTIONS (3)
  - Temporomandibular joint syndrome [Recovered/Resolved]
  - Weight increased [Recovered/Resolved]
  - Food craving [Recovered/Resolved]
